FAERS Safety Report 13258140 (Version 2)
Quarter: 2017Q1

REPORT INFORMATION
  Report Type: Spontaneous
  Country: NO (occurrence: NO)
  Receive Date: 20170221
  Receipt Date: 20170306
  Transmission Date: 20170428
  Serious: Yes (Hospitalization, Disabling, Other)
  Sender: FDA-Public Use
  Company Number: NO-ROCHE-1895400

PATIENT
  Age: 41 Year
  Sex: Female

DRUGS (6)
  1. CYCLOPHOSPHAMIDE. [Concomitant]
     Active Substance: CYCLOPHOSPHAMIDE
  2. DOXORUBICIN [Concomitant]
     Active Substance: DOXORUBICIN
  3. VINCRISTINE [Concomitant]
     Active Substance: VINCRISTINE
  4. AVASTIN [Suspect]
     Active Substance: BEVACIZUMAB
     Indication: CERVIX CARCINOMA
     Route: 065
     Dates: start: 201602
  5. TAXOL [Suspect]
     Active Substance: PACLITAXEL
     Indication: CERVIX CARCINOMA
     Route: 065
     Dates: start: 201602
  6. CISPLATIN. [Concomitant]
     Active Substance: CISPLATIN

REACTIONS (7)
  - Skin discolouration [Unknown]
  - Sepsis [Unknown]
  - Impaired healing [Unknown]
  - Pain in extremity [Unknown]
  - Capillary fragility [Unknown]
  - Erysipelas [Unknown]
  - Bone marrow failure [Unknown]
